FAERS Safety Report 12377838 (Version 1)
Quarter: 2016Q2

REPORT INFORMATION
  Report Type: Spontaneous
  Country: US (occurrence: US)
  Receive Date: 20160517
  Receipt Date: 20160517
  Transmission Date: 20160815
  Serious: No
  Sender: FDA-Public Use
  Company Number: US-MYLANLABS-2015M1022948

PATIENT
  Sex: Female

DRUGS (1)
  1. METHYLDOPA TABLETS, USP [Suspect]
     Active Substance: METHYLDOPA
     Indication: BLOOD PRESSURE MEASUREMENT
     Dosage: 500 MG, TID
     Route: 048
     Dates: start: 201504

REACTIONS (2)
  - Urine amphetamine positive [Not Recovered/Not Resolved]
  - False positive investigation result [Not Recovered/Not Resolved]

NARRATIVE: CASE EVENT DATE: 2015
